FAERS Safety Report 10698456 (Version 3)
Quarter: 2015Q1

REPORT INFORMATION
  Report Type: Other
  Country: IT (occurrence: IT)
  Receive Date: 20140924
  Receipt Date: 20150302
  Transmission Date: 20150721
  Serious: Yes (Hospitalization)
  Sender: FDA-Public Use
  Company Number: IT-APOTEX-2014AP004448

PATIENT

DRUGS (2)
  1. LIOMETACEN                         /00003802/ [Suspect]
     Active Substance: INDOMETACIN MEGLUMINE
     Indication: OSTEOARTHRITIS
     Route: 030
  2. ZOLPIDEM [Suspect]
     Active Substance: ZOLPIDEM\ZOLPIDEM TARTRATE
     Indication: MEDICATION ERROR
     Route: 048

REACTIONS (4)
  - Medication error [Recovered/Resolved]
  - Confusional state [Recovered/Resolved]
  - Off label use [Recovered/Resolved]
  - Accidental exposure to product [Recovered/Resolved]

NARRATIVE: CASE EVENT DATE: 20130330
